FAERS Safety Report 11628918 (Version 1)
Quarter: 2015Q4

REPORT INFORMATION
  Report Type: Spontaneous
  Country: FR (occurrence: FR)
  Receive Date: 20151014
  Receipt Date: 20151014
  Transmission Date: 20160304
  Serious: Yes (Hospitalization, Other)
  Sender: FDA-Public Use
  Company Number: FR-ELI_LILLY_AND_COMPANY-FR201510001458

PATIENT
  Age: 50 Year
  Sex: Female

DRUGS (6)
  1. ZYPREXA [Suspect]
     Active Substance: OLANZAPINE
     Indication: MANIA
     Dosage: 10 MG, QD
     Route: 048
     Dates: start: 20150711, end: 20150811
  2. VALIUM [Suspect]
     Active Substance: DIAZEPAM
     Indication: MANIA
     Dosage: 5 MG, QD
     Route: 048
     Dates: start: 20150711, end: 20150815
  3. ABILIFY [Suspect]
     Active Substance: ARIPIPRAZOLE
     Indication: MANIA
     Dosage: 20 MG, QD
     Route: 048
     Dates: start: 20150711, end: 20150813
  4. ABILIFY MAINTENA [Suspect]
     Active Substance: ARIPIPRAZOLE
     Indication: MANIA
     Dosage: 400 MG, SINGLE
     Route: 030
     Dates: start: 20150730, end: 20150730
  5. LOXAPAC                            /00401801/ [Suspect]
     Active Substance: LOXAPINE SUCCINATE
     Indication: MANIA
     Dosage: UNK, UNKNOWN
     Route: 048
     Dates: start: 20150711, end: 20150815
  6. ZOPICLONE [Suspect]
     Active Substance: ZOPICLONE
     Indication: PRODUCT USED FOR UNKNOWN INDICATION
     Dosage: 1 DF, PRN
     Route: 048
     Dates: end: 20150815

REACTIONS (5)
  - Pancytopenia [Recovered/Resolved]
  - Pyelonephritis [Unknown]
  - Septic shock [Unknown]
  - Erythema [Unknown]
  - Erysipelas [Unknown]

NARRATIVE: CASE EVENT DATE: 20150813
